FAERS Safety Report 4974676-4 (Version None)
Quarter: 2006Q2

REPORT INFORMATION
  Report Type: 
  Country: None (occurrence: None)
  Receive Date: 20060417
  Receipt Date: 20051025
  Transmission Date: 20061013
  Serious: Yes (Hospitalization)
  Sender: FDA-Public Use
  Company Number: US-MERCK-0510USA09224

PATIENT
  Age: 72 Year
  Sex: Female
  Weight: 68 kg

DRUGS (7)
  1. VIOXX [Suspect]
     Indication: ARTHRITIS
     Route: 048
     Dates: start: 20000503, end: 20040907
  2. NEXIUM [Concomitant]
     Route: 065
  3. TEMAZEPAM [Concomitant]
     Route: 065
  4. PREMARIN [Concomitant]
     Route: 065
  5. ECOTRIN [Concomitant]
     Route: 065
  6. INDERAL [Concomitant]
     Route: 065
     Dates: end: 20021111
  7. METOCLOPRAMIDE [Concomitant]
     Route: 065

REACTIONS (47)
  - ABDOMINAL PAIN [None]
  - ACUTE MYOCARDIAL INFARCTION [None]
  - ANGINA UNSTABLE [None]
  - APHTHOUS STOMATITIS [None]
  - BACK PAIN [None]
  - BREAST MASS [None]
  - BUNION [None]
  - CARDIOVASCULAR DISORDER [None]
  - CELLULITIS [None]
  - CEREBROVASCULAR ACCIDENT [None]
  - CHEST PAIN [None]
  - CONSTIPATION [None]
  - DEPRESSION [None]
  - DIARRHOEA [None]
  - DIVERTICULITIS [None]
  - DYSPEPSIA [None]
  - ELECTROCARDIOGRAM ST SEGMENT ELEVATION [None]
  - FATIGUE [None]
  - GASTRIC ULCER HAEMORRHAGE [None]
  - HEADACHE [None]
  - HYPERGLYCAEMIA [None]
  - HYPERLIPIDAEMIA [None]
  - HYPERTENSION [None]
  - HYPERTONIC BLADDER [None]
  - HYPOVOLAEMIA [None]
  - INFECTED BUNION [None]
  - INSOMNIA [None]
  - JOINT SWELLING [None]
  - LABYRINTHITIS [None]
  - MALNUTRITION [None]
  - MULTIPLE ALLERGIES [None]
  - MYOCARDIAL INFARCTION [None]
  - NAUSEA [None]
  - NECK PAIN [None]
  - NEURALGIA [None]
  - OSTEOPENIA [None]
  - PAIN IN EXTREMITY [None]
  - PARKINSON'S DISEASE [None]
  - PULMONARY EMBOLISM [None]
  - ROTATOR CUFF SYNDROME [None]
  - SEBORRHOEIC DERMATITIS [None]
  - SHOULDER PAIN [None]
  - STOMATITIS [None]
  - TOE DEFORMITY [None]
  - TREMOR [None]
  - VERTIGO [None]
  - VOMITING [None]
